FAERS Safety Report 4349010-3 (Version None)
Quarter: 2004Q2

REPORT INFORMATION
  Report Type: 
  Country: None (occurrence: None)
  Receive Date: 20040426
  Receipt Date: 20040426
  Transmission Date: 20050107
  Serious: Yes (Other)
  Sender: FDA-Public Use
  Company Number: None

PATIENT
  Age: 53 Year
  Sex: Female
  Weight: 63.5036 kg

DRUGS (3)
  1. WELLBUTRIN SR (GENERIC) [Suspect]
     Indication: DEPRESSION
     Dosage: 100 MG 2 PO BID
     Route: 048
  2. TRAZODONE HCL [Concomitant]
  3. XANAX [Concomitant]

REACTIONS (2)
  - DEPRESSION [None]
  - PHARMACEUTICAL PRODUCT COMPLAINT [None]
